FAERS Safety Report 10027828 (Version 1)
Quarter: 2014Q1

REPORT INFORMATION
  Report Type: Spontaneous
  Country: US (occurrence: US)
  Receive Date: 20140321
  Receipt Date: 20140321
  Transmission Date: 20141002
  Serious: Yes (Other)
  Sender: FDA-Public Use
  Company Number: CHPA2014US003943

PATIENT
  Sex: Male

DRUGS (4)
  1. TRANSDERM SCOP [Suspect]
     Indication: DIZZINESS
     Dosage: 1 DF, Q72H
     Dates: end: 20140311
  2. TRANSDERM SCOP [Suspect]
     Indication: VERTIGO
  3. TRANSDERM SCOP [Suspect]
     Indication: OFF LABEL USE
  4. MECLIZINE [Concomitant]
     Dosage: UNK
     Dates: start: 20140311

REACTIONS (7)
  - Drug dependence [Unknown]
  - Drug withdrawal syndrome [Unknown]
  - Dizziness [Recovered/Resolved]
  - Vertigo [Unknown]
  - Disease recurrence [Unknown]
  - Influenza like illness [Recovered/Resolved]
  - Nausea [Recovered/Resolved]
